FAERS Safety Report 9354415 (Version 1)
Quarter: 2013Q2

REPORT INFORMATION
  Report Type: Spontaneous
  Country: None (occurrence: US)
  Receive Date: 20130618
  Receipt Date: 20130618
  Transmission Date: 20140414
  Serious: No
  Sender: FDA-Public Use
  Company Number: US-COVIDIEN/TYCO HEALTHCARE/MALLINCKRODT-T201202631

PATIENT
  Age: 58 Year
  Sex: Female

DRUGS (2)
  1. TECHNESCAN MAG3 [Suspect]
     Indication: RADIOISOTOPE SCAN
     Dosage: UNK
     Dates: start: 20120423, end: 20120423
  2. ULTRA-TECHNEKOW DTE GENERATOR [Concomitant]
     Indication: RADIOISOTOPE SCAN
     Dosage: UNK UNK, SINGLE
     Dates: start: 20120423, end: 20120423

REACTIONS (1)
  - Drug ineffective [Recovered/Resolved]
